FAERS Safety Report 9928661 (Version 1)
Quarter: 2014Q1

REPORT INFORMATION
  Report Type: Spontaneous
  Country: US (occurrence: US)
  Receive Date: 20140227
  Receipt Date: 20140227
  Transmission Date: 20141002
  Serious: Yes (Hospitalization)
  Sender: FDA-Public Use
  Company Number: US-SHIRE-US201400017

PATIENT
  Sex: 0

DRUGS (3)
  1. VYVANSE [Suspect]
     Indication: PRODUCT USED FOR UNKNOWN INDICATION
     Dosage: 50 MG, 1X/DAY:QD
     Route: 048
  2. LIPITOR [Concomitant]
     Indication: BLOOD CHOLESTEROL INCREASED
     Dosage: 10 MG, 1X/DAY:QD
     Route: 048
  3. ADVAIR [Concomitant]
     Indication: ASTHMA
     Dosage: UNK(100/50 MCG), 1X/DAY:QD(1 PUFF)
     Route: 055

REACTIONS (3)
  - Chest pain [Unknown]
  - Back pain [Unknown]
  - Troponin increased [Unknown]
